FAERS Safety Report 5282857-8 (Version None)
Quarter: 2007Q1

REPORT INFORMATION
  Report Type: 
  Country: None (occurrence: None)
  Receive Date: 20070321
  Receipt Date: 20070315
  Transmission Date: 20070707
  Serious: Yes (Death)
  Sender: FDA-Public Use
  Company Number: 2007-155361-NL

PATIENT
  Age: 73 Year
  Sex: Male

DRUGS (6)
  1. TICE BCG [Suspect]
     Indication: BLADDER CANCER
     Dosage: INTRAVESICAL
     Route: 043
     Dates: start: 20060801, end: 20060801
  2. TICE BCG [Suspect]
     Indication: BLADDER CANCER
     Dosage: INTRAVESICAL
     Route: 043
     Dates: start: 20060808, end: 20060808
  3. TICE BCG [Suspect]
     Indication: BLADDER CANCER
     Dosage: INTRAVESICAL
     Route: 043
     Dates: start: 20060815, end: 20060815
  4. TICE BCG [Suspect]
     Indication: BLADDER CANCER
     Dosage: INTRAVESICAL
     Route: 043
     Dates: start: 20060822, end: 20060822
  5. TICE BCG [Suspect]
     Indication: BLADDER CANCER
     Dosage: INTRAVESICAL
     Route: 043
     Dates: start: 20060829, end: 20060829
  6. TICE BCG [Suspect]
     Indication: BLADDER CANCER
     Dosage: INTRAVESICAL
     Route: 043
     Dates: start: 20070227, end: 20070227

REACTIONS (4)
  - DRUG HYPERSENSITIVITY [None]
  - ERYTHEMA [None]
  - GENERAL PHYSICAL HEALTH DETERIORATION [None]
  - PYREXIA [None]
